FAERS Safety Report 16485989 (Version 1)
Quarter: 2019Q2

REPORT INFORMATION
  Report Type: Spontaneous
  Country: US (occurrence: US)
  Receive Date: 20190627
  Receipt Date: 20190627
  Transmission Date: 20190711
  Serious: Yes (Hospitalization, Other)
  Sender: FDA-Public Use
  Company Number: US-JNJFOC-20190630242

PATIENT
  Age: 69 Year
  Sex: Male

DRUGS (2)
  1. INVOKANA [Suspect]
     Active Substance: CANAGLIFLOZIN
     Indication: PRODUCT USED FOR UNKNOWN INDICATION
     Route: 048
  2. INVOKAMET [Suspect]
     Active Substance: CANAGLIFLOZIN\METFORMIN HYDROCHLORIDE
     Indication: TYPE 2 DIABETES MELLITUS
     Dosage: 150-500 MG
     Route: 048
     Dates: start: 20170101

REACTIONS (4)
  - Osteomyelitis [Unknown]
  - Foot amputation [Unknown]
  - Diabetic ulcer [Unknown]
  - Gangrene [Unknown]

NARRATIVE: CASE EVENT DATE: 201806
